FAERS Safety Report 8495648-1 (Version None)
Quarter: 2012Q2

REPORT INFORMATION
  Report Type: 
  Country: None (occurrence: None)
  Receive Date: 20120405
  Receipt Date: 20091118
  Transmission Date: 20120825
  Serious: Yes (Hospitalization)
  Sender: FDA-Public Use
  Company Number: PHEH2009US14961

PATIENT
  Age: 64 Year
  Sex: Female
  Weight: 60.3 kg

DRUGS (8)
  1. XANAX [Concomitant]
  2. ACETAMINOPHEN [Concomitant]
  3. VITAMIN D [Concomitant]
  4. CALCIUM CARBONATE [Concomitant]
  5. VITAMIN B12 [Concomitant]
  6. LISINOPRIL [Concomitant]
  7. RECLAST [Suspect]
     Indication: OSTEOPOROSIS
     Dosage: 5 MG IV, INFUSION
     Route: 042
     Dates: start: 20091015, end: 20091015
  8. NEXIUM [Concomitant]

REACTIONS (12)
  - HEADACHE [None]
  - IMPAIRED DRIVING ABILITY [None]
  - WEIGHT DECREASED [None]
  - MYALGIA [None]
  - PAIN [None]
  - IRITIS [None]
  - UVEITIS [None]
  - EATING DISORDER [None]
  - EYE PAIN [None]
  - ACTIVITIES OF DAILY LIVING IMPAIRED [None]
  - VISUAL ACUITY REDUCED [None]
  - MOVEMENT DISORDER [None]
